FAERS Safety Report 20735239 (Version 1)
Quarter: 2022Q2

REPORT INFORMATION
  Report Type: Spontaneous
  Country: US (occurrence: US)
  Receive Date: 20220421
  Receipt Date: 20220421
  Transmission Date: 20220720
  Serious: Yes (Hospitalization)
  Sender: FDA-Public Use
  Company Number: US-BIOVITRUM-2022US05281

PATIENT
  Sex: Male

DRUGS (6)
  1. DOPTELET [Suspect]
     Active Substance: AVATROMBOPAG MALEATE
     Indication: Polyarthritis
     Route: 048
     Dates: start: 20211215
  2. DOPTELET [Suspect]
     Active Substance: AVATROMBOPAG MALEATE
     Indication: Immune thrombocytopenia
  3. DOPTELET [Suspect]
     Active Substance: AVATROMBOPAG MALEATE
     Indication: Spinal osteoarthritis
  4. PROMACTA [Concomitant]
     Active Substance: ELTROMBOPAG OLAMINE
  5. DOPTELET [Suspect]
     Active Substance: AVATROMBOPAG MALEATE
     Indication: Thrombocytopenia
  6. COSENTYX [Concomitant]
     Active Substance: SECUKINUMAB

REACTIONS (1)
  - Infusion site swelling [Unknown]
